FAERS Safety Report 16681748 (Version 3)
Quarter: 2019Q3

REPORT INFORMATION
  Report Type: Spontaneous
  Country: US (occurrence: US)
  Receive Date: 20190808
  Receipt Date: 20190819
  Transmission Date: 20191004
  Serious: Yes (Other)
  Sender: FDA-Public Use
  Company Number: US-ROCHE-2366511

PATIENT
  Age: 56 Year
  Sex: Male
  Weight: 90.8 kg

DRUGS (3)
  1. HEMLIBRA [Suspect]
     Active Substance: EMICIZUMAB-KXWH
     Indication: FACTOR VIII DEFICIENCY
     Route: 058
     Dates: start: 20180903
  2. NORCO [Suspect]
     Active Substance: ACETAMINOPHEN\HYDROCODONE BITARTRATE
     Indication: PRODUCT USED FOR UNKNOWN INDICATION
     Dosage: 10/325 1-2 TABS
     Route: 065
  3. HEMLIBRA [Suspect]
     Active Substance: EMICIZUMAB-KXWH
     Indication: HAEMOPHILIA
     Route: 058
     Dates: start: 201602

REACTIONS (3)
  - Blood pressure systolic increased [Recovered/Resolved]
  - Arthralgia [Not Recovered/Not Resolved]
  - Chest pain [Unknown]

NARRATIVE: CASE EVENT DATE: 20190704
